FAERS Safety Report 9846297 (Version 2)
Quarter: 2014Q1

REPORT INFORMATION
  Report Type: Spontaneous
  Country: JP (occurrence: JP)
  Receive Date: 20140127
  Receipt Date: 20140131
  Transmission Date: 20141002
  Serious: Yes (Hospitalization)
  Sender: FDA-Public Use
  Company Number: JP-BAYER-2014-012695

PATIENT
  Age: 69 Year
  Sex: Female

DRUGS (2)
  1. BAYASPIRIN [Suspect]
     Dosage: UNK
     Route: 048
  2. WARFARIN [Interacting]
     Dosage: UNK
     Route: 048

REACTIONS (3)
  - Retroperitoneal haematoma [Recovering/Resolving]
  - Shock haemorrhagic [Recovering/Resolving]
  - Labelled drug-drug interaction medication error [None]
